FAERS Safety Report 6574869-9 (Version None)
Quarter: 2010Q1

REPORT INFORMATION
  Report Type: 
  Country: None (occurrence: None)
  Receive Date: 20100209
  Receipt Date: 20100120
  Transmission Date: 20100710
  Serious: Yes (Life-Threatening)
  Sender: FDA-Public Use
  Company Number: PHHY2010JM02905

PATIENT
  Age: 35 Year
  Sex: Female

DRUGS (3)
  1. TEGRETOL [Suspect]
     Indication: BACK PAIN
     Dosage: 200 MG, BID
     Route: 048
  2. VOLTAREN - SLOW RELEASE ^NOVARTIS^ [Concomitant]
     Indication: BACK PAIN
  3. MUSCLE RELAXANTS [Concomitant]

REACTIONS (3)
  - APPARENT DEATH [None]
  - HYPOAESTHESIA [None]
  - LETHARGY [None]
